FAERS Safety Report 6414070-2 (Version None)
Quarter: 2009Q4

REPORT INFORMATION
  Report Type: 
  Country: None (occurrence: None)
  Receive Date: 20091022
  Receipt Date: 20091022
  Transmission Date: 20100525
  Serious: Yes (Other)
  Sender: FDA-Public Use
  Company Number: None

PATIENT
  Age: 54 Year
  Sex: Female
  Weight: 72.5755 kg

DRUGS (3)
  1. DILTIAZEM HYDROCHLORIDE [Suspect]
     Indication: CHEST PAIN
     Dosage: 204 MG 1 CAPSULE DAILY
     Dates: start: 20091003, end: 20091021
  2. DILTIAZEM HYDROCHLORIDE [Suspect]
     Indication: HEART RATE IRREGULAR
     Dosage: 204 MG 1 CAPSULE DAILY
     Dates: start: 20091003, end: 20091021
  3. DILTIAZEM HYDROCHLORIDE [Suspect]
     Indication: HYPERTENSION
     Dosage: 204 MG 1 CAPSULE DAILY
     Dates: start: 20091003, end: 20091021

REACTIONS (5)
  - ANXIETY [None]
  - BLOOD PRESSURE INCREASED [None]
  - CHEST PAIN [None]
  - DRUG INEFFECTIVE [None]
  - HEART RATE IRREGULAR [None]
